FAERS Safety Report 15022538 (Version 2)
Quarter: 2018Q3

REPORT INFORMATION
  Report Type: Spontaneous
  Country: US (occurrence: US)
  Receive Date: 20180618
  Receipt Date: 20180709
  Transmission Date: 20181010
  Serious: No
  Sender: FDA-Public Use
  Company Number: US-MYLANLABS-2018M1034726

PATIENT
  Age: 62 Year
  Sex: Female

DRUGS (5)
  1. CALCIUM CARBONATE. [Concomitant]
     Active Substance: CALCIUM CARBONATE
     Indication: OSTEOPOROSIS
     Dosage: UNK
  2. EXTENDED PHENYTOIN SODIUM [Suspect]
     Active Substance: PHENYTOIN SODIUM
     Dosage: 400 MG, BID (TWO CAPSULES IN THE MORNING AND TWO CAPSULES AT NIGHT)
  3. EXTENDED PHENYTOIN SODIUM [Suspect]
     Active Substance: PHENYTOIN SODIUM
     Indication: SEIZURE
     Dosage: 300 MG, BID (1 CAPSULE IN THE MORNING AND TWO CAPSULES AT NIGHT)
     Route: 048
  4. VITAMIN D                          /00107901/ [Concomitant]
     Active Substance: ERGOCALCIFEROL
     Indication: OSTEOPOROSIS
     Dosage: UNK
  5. FOSAMAX [Concomitant]
     Active Substance: ALENDRONATE SODIUM
     Indication: OSTEOPOROSIS
     Dosage: UNK
     Dates: start: 20180330, end: 20180511

REACTIONS (2)
  - Drug level decreased [Recovered/Resolved]
  - Drug level increased [Recovering/Resolving]

NARRATIVE: CASE EVENT DATE: 20180514
